FAERS Safety Report 10971894 (Version 1)
Quarter: 2015Q1

REPORT INFORMATION
  Report Type: Report from Study
  Country: BR (occurrence: BR)
  Receive Date: 20150331
  Receipt Date: 20150331
  Transmission Date: 20150721
  Serious: Yes (Death)
  Sender: FDA-Public Use
  Company Number: PHHY2015BR038464

PATIENT
  Age: 76 Year
  Sex: Female

DRUGS (2)
  1. FORASEQ [Suspect]
     Active Substance: BUDESONIDE\FORMOTEROL FUMARATE
     Indication: EMPHYSEMA
     Dosage: 4 DF, DAILY (IN THE MORNING AND AT NIGHT)
     Route: 065
     Dates: start: 20140926
  2. FORASEQ [Suspect]
     Active Substance: BUDESONIDE\FORMOTEROL FUMARATE
     Dosage: 2 DF, 1 CAPSULE OF EACH TREATMENT IN THE MORNING AND AT NIGHT
     Route: 065
     Dates: end: 201502

REACTIONS (2)
  - Death [Fatal]
  - Asthenia [Fatal]

NARRATIVE: CASE EVENT DATE: 20150304
